FAERS Safety Report 9125561 (Version 2)
Quarter: 2013Q2

REPORT INFORMATION
  Report Type: Spontaneous
  Country: US (occurrence: US)
  Receive Date: 20130121
  Receipt Date: 20130508
  Transmission Date: 20140414
  Serious: Yes (Hospitalization)
  Sender: FDA-Public Use
  Company Number: US-GLAXOSMITHKLINE-A1008221A

PATIENT
  Age: 66 Year
  Sex: Female

DRUGS (2)
  1. ARIXTRA [Suspect]
     Indication: KNEE ARTHROPLASTY
     Dosage: 2.5MG PER DAY
     Route: 058
     Dates: start: 20120531, end: 20120605
  2. PAIN MEDICATIONS [Concomitant]

REACTIONS (5)
  - Post procedural haemorrhage [Recovered/Resolved with Sequelae]
  - Transfusion [Unknown]
  - Skin discolouration [Unknown]
  - Surgery [Unknown]
  - Memory impairment [Unknown]
